FAERS Safety Report 10868649 (Version 1)
Quarter: 2015Q1

REPORT INFORMATION
  Report Type: Spontaneous
  Country: US (occurrence: US)
  Receive Date: 20150225
  Receipt Date: 20150225
  Transmission Date: 20150721
  Serious: Yes (Hospitalization, Other)
  Sender: FDA-Public Use
  Company Number: US-JAZZ-2014-US-009523

PATIENT
  Age: 76 Year
  Sex: Male

DRUGS (2)
  1. XYREM [Suspect]
     Active Substance: SODIUM OXYBATE
     Indication: CATAPLEXY
  2. XYREM [Suspect]
     Active Substance: SODIUM OXYBATE
     Indication: NARCOLEPSY
     Dosage: 2.25 G, BID
     Route: 048
     Dates: start: 201104, end: 2014

REACTIONS (8)
  - Skull fracture [Not Recovered/Not Resolved]
  - Contusion [Unknown]
  - Fluid retention [Not Recovered/Not Resolved]
  - Urinary tract infection [Recovering/Resolving]
  - Fall [Recovered/Resolved]
  - Urinary retention [Unknown]
  - Cerebral haemorrhage [Unknown]
  - Seizure like phenomena [Unknown]

NARRATIVE: CASE EVENT DATE: 2014
